FAERS Safety Report 10184788 (Version 1)
Quarter: 2014Q2

REPORT INFORMATION
  Report Type: Report from Study
  Country: IN (occurrence: IN)
  Receive Date: 20140521
  Receipt Date: 20140521
  Transmission Date: 20141212
  Serious: Yes (Death, Hospitalization)
  Sender: FDA-Public Use
  Company Number: PHHY2014IN059834

PATIENT
  Age: 23 Year
  Sex: Female

DRUGS (1)
  1. ASUNRA [Suspect]
     Indication: THALASSAEMIA
     Dosage: 200 MG, QD
     Route: 048

REACTIONS (1)
  - Cerebrovascular accident [Fatal]
